FAERS Safety Report 25389139 (Version 1)
Quarter: 2025Q2

REPORT INFORMATION
  Report Type: Report from Study
  Country: CA (occurrence: CA)
  Receive Date: 20250603
  Receipt Date: 20250603
  Transmission Date: 20250717
  Serious: Yes (Other)
  Sender: TEVA
  Company Number: CA-TEVA-VS-3337034

PATIENT
  Age: 13 Year
  Sex: Male

DRUGS (1)
  1. TOBRAMYCIN [Suspect]
     Active Substance: TOBRAMYCIN
     Indication: Antibiotic therapy
     Route: 065

REACTIONS (2)
  - Drug hypersensitivity [Unknown]
  - Drug reaction with eosinophilia and systemic symptoms [Unknown]
